FAERS Safety Report 22661493 (Version 1)
Quarter: 2023Q2

REPORT INFORMATION
  Report Type: Report from Study
  Country: GB (occurrence: GB)
  Receive Date: 20230630
  Receipt Date: 20230630
  Transmission Date: 20230722
  Serious: Yes (Hospitalization)
  Sender: FDA-Public Use
  Company Number: GB-ARGENX-2023-ARGX-GB001389

PATIENT

DRUGS (1)
  1. EFGARTIGIMOD ALFA [Suspect]
     Active Substance: EFGARTIGIMOD ALFA
     Indication: Myasthenia gravis

REACTIONS (11)
  - Venous angioplasty [Unknown]
  - Joint swelling [Unknown]
  - Myasthenia gravis [Recovering/Resolving]
  - Venous occlusion [Unknown]
  - Fistula [Unknown]
  - Muscular weakness [Unknown]
  - Confusional state [Unknown]
  - Loss of consciousness [Unknown]
  - Poor venous access [Unknown]
  - Fatigue [Unknown]
  - Myalgia [Unknown]

NARRATIVE: CASE EVENT DATE: 20230512
